FAERS Safety Report 14018350 (Version 1)
Quarter: 2017Q3

REPORT INFORMATION
  Report Type: Spontaneous
  Country: US (occurrence: US)
  Receive Date: 20170927
  Receipt Date: 20170927
  Transmission Date: 20171128
  Serious: Yes (Other)
  Sender: FDA-Public Use
  Company Number: None

PATIENT
  Sex: Female
  Weight: 54 kg

DRUGS (5)
  1. CALCIUM 500+ D3 [Concomitant]
  2. L-LYSINE [Concomitant]
     Active Substance: LYSINE
  3. CAPECITABINE. [Suspect]
     Active Substance: CAPECITABINE
     Indication: COLON CANCER
     Route: 048
     Dates: start: 20170901, end: 20170927
  4. IRON [Concomitant]
     Active Substance: IRON
  5. GLUCOSAMINE CHONDROITIN COMPLEX [Concomitant]
     Active Substance: CHONDROITIN SULFATE (BOVINE)\GLUCOSAMINE HYDROCHLORIDE

REACTIONS (8)
  - Decreased appetite [None]
  - Rash [None]
  - Stomatitis [None]
  - Gingival bleeding [None]
  - Erythema [None]
  - Vomiting [None]
  - Trismus [None]
  - Hyperkeratosis [None]
